FAERS Safety Report 6426518-8 (Version None)
Quarter: 2009Q4

REPORT INFORMATION
  Report Type: 
  Country: None (occurrence: None)
  Receive Date: 20091030
  Receipt Date: 20091015
  Transmission Date: 20100525
  Serious: Yes (Death, Hospitalization)
  Sender: FDA-Public Use
  Company Number: 2009001526

PATIENT
  Age: 69 Year
  Sex: Female

DRUGS (2)
  1. ERLOTINIB HYDROCHLORIDE [Suspect]
     Dosage: (150 MG, QD), ORAL
     Route: 048
     Dates: start: 20090508, end: 20090513
  2. CAPECITABINE [Suspect]
     Dosage: (2000 MG, BID), ORAL
     Route: 048
     Dates: start: 20090508, end: 20090513

REACTIONS (18)
  - BLOOD PHOSPHORUS DECREASED [None]
  - BLOOD PRESSURE SYSTOLIC INCREASED [None]
  - BREATH SOUNDS ABNORMAL [None]
  - CARDIAC ARREST [None]
  - COMA [None]
  - ELECTROCARDIOGRAM ST SEGMENT ELEVATION [None]
  - EYELID OEDEMA [None]
  - GAMMA-GLUTAMYLTRANSFERASE INCREASED [None]
  - HYPOCHLORAEMIA [None]
  - HYPONATRAEMIA [None]
  - HYPOPNOEA [None]
  - HYPOXIC ENCEPHALOPATHY [None]
  - INCREASED UPPER AIRWAY SECRETION [None]
  - MENTAL STATUS CHANGES [None]
  - MYDRIASIS [None]
  - PCO2 INCREASED [None]
  - RESPIRATORY FAILURE [None]
  - SINUS TACHYCARDIA [None]
